FAERS Safety Report 6254222-8 (Version None)
Quarter: 2009Q2

REPORT INFORMATION
  Report Type: 
  Country: None (occurrence: None)
  Receive Date: 20090630
  Receipt Date: 20090630
  Transmission Date: 20091009
  Serious: Yes (Hospitalization)
  Sender: FDA-Public Use
  Company Number: None

PATIENT
  Age: 69 Year
  Sex: Male
  Weight: 80 kg

DRUGS (1)
  1. SERTRALINE [Suspect]
     Indication: AFFECTIVE DISORDER
     Dosage: 75 MG QAM PO
     Route: 048
     Dates: start: 20090502, end: 20090508

REACTIONS (4)
  - BLOOD SODIUM DECREASED [None]
  - CONDITION AGGRAVATED [None]
  - PARANOIA [None]
  - SCHIZOAFFECTIVE DISORDER [None]
